FAERS Safety Report 6628876-8 (Version None)
Quarter: 2010Q1

REPORT INFORMATION
  Report Type: 
  Country: None (occurrence: None)
  Receive Date: 20100311
  Receipt Date: 20100301
  Transmission Date: 20100710
  Serious: Yes (Life-Threatening)
  Sender: FDA-Public Use
  Company Number: GXKR2010FR02473

PATIENT

DRUGS (5)
  1. PROPRANOLOL (NGX) [Suspect]
     Dosage: 2 G, UNK
     Route: 065
  2. MEPROBAMATE (NGX) [Suspect]
     Route: 065
  3. PAROXETINE (NGX) [Suspect]
     Route: 065
  4. PARACETAMOL (NGX) [Suspect]
     Route: 065
  5. DEXTROPROPOXYPHENE (NGX) [Suspect]
     Route: 065

REACTIONS (5)
  - CARDIAC ARREST [None]
  - LIFE SUPPORT [None]
  - MECHANICAL VENTILATION [None]
  - OVERDOSE [None]
  - SINUS RHYTHM [None]
